FAERS Safety Report 11224188 (Version 1)
Quarter: 2015Q2

REPORT INFORMATION
  Report Type: Spontaneous
  Country: CA (occurrence: CA)
  Receive Date: 20150629
  Receipt Date: 20150629
  Transmission Date: 20150821
  Serious: Yes (Other)
  Sender: FDA-Public Use
  Company Number: CA-AMGEN-CANSP2015063516

PATIENT
  Age: 66 Year
  Sex: Male

DRUGS (1)
  1. ENBREL [Suspect]
     Active Substance: ETANERCEPT
     Indication: RHEUMATOID ARTHRITIS
     Dosage: UNK
     Route: 065

REACTIONS (10)
  - Finger deformity [Unknown]
  - Joint crepitation [Unknown]
  - Aggression [Unknown]
  - Hand deformity [Unknown]
  - Foot deformity [Unknown]
  - Knee arthroplasty [Unknown]
  - Drug effect decreased [Unknown]
  - Arthralgia [Unknown]
  - Depressed mood [Unknown]
  - Arthropathy [Unknown]

NARRATIVE: CASE EVENT DATE: 2012
